FAERS Safety Report 17202067 (Version 1)
Quarter: 2019Q4

REPORT INFORMATION
  Report Type: Report from Study
  Country: US (occurrence: US)
  Receive Date: 20191226
  Receipt Date: 20191226
  Transmission Date: 20200122
  Serious: Yes (Hospitalization)
  Sender: FDA-Public Use
  Company Number: US-ROCHE-2501092

PATIENT
  Sex: Female

DRUGS (1)
  1. OCREVUS [Suspect]
     Active Substance: OCRELIZUMAB
     Indication: RELAPSING MULTIPLE SCLEROSIS
     Dosage: ONGOING:YES?DAY 1 AND DAY 15 THEN 600 MG IV ONCE IN 6 MONTHS?PREVIOUS DATE OF TREATMENT = 06/DEC/201
     Route: 042
     Dates: start: 20181206

REACTIONS (3)
  - Urinary tract infection [Unknown]
  - Neoplasm malignant [Unknown]
  - Thrombosis [Unknown]

NARRATIVE: CASE EVENT DATE: 2019
